FAERS Safety Report 20306495 (Version 4)
Quarter: 2022Q1

REPORT INFORMATION
  Report Type: Report from Study
  Country: TW (occurrence: TW)
  Receive Date: 20220106
  Receipt Date: 20220128
  Transmission Date: 20220423
  Serious: Yes (Hospitalization)
  Sender: FDA-Public Use
  Company Number: TW-JNJFOC-20220104587

PATIENT
  Age: 65 Year
  Sex: Female
  Weight: 59 kg

DRUGS (9)
  1. AMIVANTAMAB [Suspect]
     Active Substance: AMIVANTAMAB
     Indication: Non-small cell lung cancer
     Route: 042
     Dates: start: 20211223
  2. SOLAXIN(CHLORZOXAZONE) [Concomitant]
     Indication: Pain in extremity
     Route: 048
     Dates: start: 20211110
  3. DEXCHLORPHANIRAMINE [Concomitant]
     Indication: Herpes zoster
     Route: 048
     Dates: start: 20211220, end: 20211222
  4. GABAPENTIN [Concomitant]
     Active Substance: GABAPENTIN
     Indication: Herpes zoster
     Route: 048
     Dates: start: 20211220, end: 20211222
  5. ACYCLOVIR [Concomitant]
     Active Substance: ACYCLOVIR
     Indication: Herpes zoster
     Route: 048
     Dates: start: 20211220, end: 20211222
  6. ACYCLOVIR [Concomitant]
     Active Substance: ACYCLOVIR
     Route: 061
     Dates: start: 20211220, end: 20211222
  7. DICLOFENAC SODIUM [Concomitant]
     Active Substance: DICLOFENAC SODIUM
     Indication: Herpes zoster
     Route: 048
     Dates: start: 20211220, end: 20211222
  8. DOXYCYCLINE [Concomitant]
     Active Substance: DOXYCYCLINE
     Indication: Carbuncle
     Route: 048
     Dates: start: 20211222
  9. GLUCOPHAGE [Concomitant]
     Active Substance: METFORMIN HYDROCHLORIDE
     Indication: Type 2 diabetes mellitus
     Route: 048

REACTIONS (2)
  - Subcutaneous abscess [Recovered/Resolved]
  - Pyrexia [Recovered/Resolved]

NARRATIVE: CASE EVENT DATE: 20211229
